FAERS Safety Report 20631488 (Version 1)
Quarter: 2022Q1

REPORT INFORMATION
  Report Type: Spontaneous
  Country: US (occurrence: None)
  Receive Date: 20220323
  Receipt Date: 20220323
  Transmission Date: 20220423
  Serious: Yes (Hospitalization)
  Sender: FDA-Public Use
  Company Number: None

PATIENT
  Age: 50 Year
  Sex: Male

DRUGS (15)
  1. AMBRISENTAN [Suspect]
     Active Substance: AMBRISENTAN
     Indication: Heritable pulmonary arterial hypertension
     Dosage: FREQUENCY : DAILY;?
     Route: 048
     Dates: start: 20210413
  2. AMBRISENTAN [Suspect]
     Active Substance: AMBRISENTAN
     Indication: Pulmonary arterial hypertension
  3. ADEMPAS [Concomitant]
     Active Substance: RIOCIGUAT
  4. ZOLPIDEM [Concomitant]
     Active Substance: ZOLPIDEM TARTRATE
  5. BUMETANIDE [Concomitant]
     Active Substance: BUMETANIDE
  6. HYDROXYZINE [Concomitant]
     Active Substance: HYDROXYZINE HYDROCHLORIDE
  7. METOLAZONE [Concomitant]
     Active Substance: METOLAZONE
  8. POTASSIUM CHLORIDE [Concomitant]
     Active Substance: POTASSIUM CHLORIDE
  9. MIDODRINE [Concomitant]
     Active Substance: MIDODRINE
  10. BISOPROLOL [Concomitant]
     Active Substance: BISOPROLOL
  11. FERROUS SULFATE [Concomitant]
     Active Substance: FERROUS SULFATE
  12. URSODIOL [Concomitant]
     Active Substance: URSODIOL
  13. VITAMIN D3 [Concomitant]
     Active Substance: CHOLECALCIFEROL
  14. SPIRONOLACTONE [Concomitant]
  15. CLEARLAX [Concomitant]
     Active Substance: POLYETHYLENE GLYCOL 3350

REACTIONS (4)
  - Blood loss anaemia [None]
  - Gastrointestinal haemorrhage [None]
  - Hypervolaemia [None]
  - Right ventricular failure [None]

NARRATIVE: CASE EVENT DATE: 20220218
